FAERS Safety Report 24975913 (Version 1)
Quarter: 2025Q1

REPORT INFORMATION
  Report Type: Spontaneous
  Country: US (occurrence: US)
  Receive Date: 20250217
  Receipt Date: 20250217
  Transmission Date: 20250409
  Serious: No
  Sender: ALKEM
  Company Number: US-ALKEM LABORATORIES LIMITED-US-ALKEM-2024-03231

PATIENT
  Sex: Female

DRUGS (1)
  1. GABAPENTIN [Suspect]
     Active Substance: GABAPENTIN
     Indication: Product used for unknown indication
     Route: 048

REACTIONS (7)
  - Fall [Unknown]
  - Skeletal injury [Unknown]
  - Vision blurred [Unknown]
  - Hot flush [Unknown]
  - Intentional dose omission [Unknown]
  - Palpitations [Unknown]
  - Withdrawal syndrome [Unknown]
